FAERS Safety Report 4478799-8 (Version None)
Quarter: 2004Q4

REPORT INFORMATION
  Report Type: 
  Country: None (occurrence: None)
  Receive Date: 20041019
  Receipt Date: 20041012
  Transmission Date: 20050328
  Serious: Yes (Other)
  Sender: FDA-Public Use
  Company Number: PHBS2004CZ13621

PATIENT
  Age: 17 Month
  Sex: Male

DRUGS (2)
  1. ELIDEL [Suspect]
     Indication: DERMATITIS ATOPIC
     Route: 061
     Dates: start: 20040525, end: 20040622
  2. ELIDEL [Suspect]
     Dosage: UNK, UNK
     Route: 061

REACTIONS (5)
  - ANGIONEUROTIC OEDEMA [None]
  - DERMATITIS ALLERGIC [None]
  - ERYTHEMA [None]
  - PERIORBITAL OEDEMA [None]
  - SWELLING FACE [None]
